FAERS Safety Report 9397568 (Version 1)
Quarter: 2013Q3

REPORT INFORMATION
  Report Type: Report from Study
  Country: MX (occurrence: MX)
  Receive Date: 20130712
  Receipt Date: 20130712
  Transmission Date: 20140515
  Serious: Yes (Death)
  Sender: FDA-Public Use
  Company Number: MX-ROCHE-1248256

PATIENT
  Sex: Female

DRUGS (2)
  1. HERCEPTIN [Suspect]
     Indication: BREAST CANCER
     Dosage: FREQUENCY REPORTED AS EVERY 21 DAYS
     Route: 042
     Dates: start: 20120208
  2. HERCEPTIN [Suspect]
     Dosage: FREQUENCY REPORTED AS EVERY 21 DAYS
     Route: 042
     Dates: start: 20120809

REACTIONS (3)
  - Death [Fatal]
  - Fatigue [Unknown]
  - Dizziness [Unknown]
